FAERS Safety Report 11510185 (Version 1)
Quarter: 2015Q3

REPORT INFORMATION
  Report Type: Spontaneous
  Country: US (occurrence: US)
  Receive Date: 20150915
  Receipt Date: 20150915
  Transmission Date: 20151125
  Serious: No
  Sender: FDA-Public Use
  Company Number: US-JNJFOC-20150812857

PATIENT
  Sex: Male
  Weight: 95.26 kg

DRUGS (10)
  1. TYLENOL [Suspect]
     Active Substance: ACETAMINOPHEN
     Route: 048
  2. IRON [Concomitant]
     Active Substance: IRON
     Indication: PRODUCT USED FOR UNKNOWN INDICATION
     Route: 048
  3. VITAMIN D [Concomitant]
     Active Substance: CHOLECALCIFEROL
     Indication: NUTRITIONAL SUPPLEMENTATION
     Dosage: 50000 U
     Route: 048
  4. TYLENOL [Suspect]
     Active Substance: ACETAMINOPHEN
     Indication: ARTHRALGIA
     Route: 048
  5. AZATHIOPRINE. [Concomitant]
     Active Substance: AZATHIOPRINE
     Indication: COLITIS ULCERATIVE
     Route: 048
  6. LEVOTHYROXINE. [Concomitant]
     Active Substance: LEVOTHYROXINE
     Indication: HYPOTHYROIDISM
     Route: 048
  7. OMEPRAZOLE. [Concomitant]
     Active Substance: OMEPRAZOLE
     Indication: PRODUCT USED FOR UNKNOWN INDICATION
     Route: 048
  8. TERBINAFINE. [Concomitant]
     Active Substance: TERBINAFINE
     Indication: ONYCHOMYCOSIS
     Route: 048
  9. REMICADE [Concomitant]
     Active Substance: INFLIXIMAB
     Indication: COLITIS ULCERATIVE
     Route: 042
  10. PREDNISONE. [Concomitant]
     Active Substance: PREDNISONE
     Indication: ARTHRALGIA
     Route: 048

REACTIONS (2)
  - Product use issue [Unknown]
  - Drug ineffective for unapproved indication [Unknown]
